FAERS Safety Report 4540812-7 (Version None)
Quarter: 2004Q4

REPORT INFORMATION
  Report Type: 
  Country: None (occurrence: None)
  Receive Date: 20041229
  Receipt Date: 20030605
  Transmission Date: 20050328
  Serious: Yes (Life-Threatening, Hospitalization, Other)
  Sender: FDA-Public Use
  Company Number: US-MERCK-0306USA00806

PATIENT
  Age: 56 Year
  Sex: Female
  Weight: 133 kg

DRUGS (17)
  1. VIOXX [Suspect]
     Indication: PAIN
     Route: 048
     Dates: end: 20000830
  2. NITROGLYCERIN [Concomitant]
     Route: 055
  3. IMDUR [Concomitant]
     Route: 048
  4. HUMULIN N [Concomitant]
     Route: 058
  5. HUMULIN N [Concomitant]
     Route: 058
  6. CARDIZEM [Concomitant]
     Route: 048
  7. POTASSIUM (UNSPECIFIED) [Concomitant]
     Route: 048
  8. PEPCID [Concomitant]
     Route: 048
  9. AMBIEN [Concomitant]
     Route: 048
  10. PROPULSID [Concomitant]
     Route: 048
  11. ASPIRIN [Concomitant]
     Route: 048
  12. LIPITOR [Concomitant]
     Route: 048
  13. GLUCOPHAGE [Concomitant]
     Route: 048
  14. LASIX [Concomitant]
     Route: 048
  15. PROZAC [Concomitant]
     Route: 048
  16. SURFAK [Concomitant]
     Route: 048
  17. CHLORPHENIRAMINE MALEATE W/PHENYLEPHRINE HYDROCHLORIDE SYRUP [Concomitant]
     Route: 065

REACTIONS (66)
  - ABDOMINAL DISTENSION [None]
  - ABDOMINAL PAIN [None]
  - ACUTE MYOCARDIAL INFARCTION [None]
  - ADVERSE EVENT [None]
  - ANGINA UNSTABLE [None]
  - AORTIC ATHEROSCLEROSIS [None]
  - AORTIC VALVE CALCIFICATION [None]
  - AORTIC VALVE INCOMPETENCE [None]
  - ARTHRALGIA [None]
  - ASTHENIA [None]
  - ATELECTASIS [None]
  - AUTONOMIC NEUROPATHY [None]
  - BACK PAIN [None]
  - BILIARY DILATATION [None]
  - BLOOD PRESSURE INCREASED [None]
  - BUNDLE BRANCH BLOCK LEFT [None]
  - BUNDLE BRANCH BLOCK RIGHT [None]
  - CARDIAC FAILURE CONGESTIVE [None]
  - CARDIAC FLUTTER [None]
  - CARDIOMEGALY [None]
  - CATARACT [None]
  - CERVICAL SPINAL STENOSIS [None]
  - CHILLS [None]
  - CHOLELITHIASIS [None]
  - CHOLELITHIASIS OBSTRUCTIVE [None]
  - COMPRESSION FRACTURE [None]
  - CONSTIPATION [None]
  - CONVULSION [None]
  - CORONARY ARTERY DISEASE [None]
  - CORONARY ARTERY RESTENOSIS [None]
  - CORONARY ARTERY STENOSIS [None]
  - COUGH [None]
  - DEHYDRATION [None]
  - DIABETES MELLITUS INADEQUATE CONTROL [None]
  - DIABETES MELLITUS INSULIN-DEPENDENT [None]
  - DIABETIC RETINOPATHY [None]
  - EPIGASTRIC DISCOMFORT [None]
  - FALL [None]
  - FATIGUE [None]
  - GASTROENTERITIS VIRAL [None]
  - GASTROOESOPHAGEAL REFLUX DISEASE [None]
  - HAEMATOMA [None]
  - HEADACHE [None]
  - IMPAIRED GASTRIC EMPTYING [None]
  - KETOSIS [None]
  - LIGAMENT INJURY [None]
  - LOCALISED OSTEOARTHRITIS [None]
  - LUMBAR RADICULOPATHY [None]
  - MIGRAINE [None]
  - MITRAL VALVE INCOMPETENCE [None]
  - MUSCULOSKELETAL PAIN [None]
  - MYOCARDIAL INFARCTION [None]
  - MYOCARDIAL ISCHAEMIA [None]
  - MYOSITIS [None]
  - NOCTURIA [None]
  - OEDEMA PERIPHERAL [None]
  - OSTEOPOROSIS [None]
  - PAIN IN EXTREMITY [None]
  - PULMONARY EMBOLISM [None]
  - PULMONARY HYPERTENSION [None]
  - PULMONARY OEDEMA [None]
  - RETINAL DETACHMENT [None]
  - TACHYPNOEA [None]
  - TIBIA FRACTURE [None]
  - TRICUSPID VALVE INCOMPETENCE [None]
  - VASCULAR CALCIFICATION [None]
